FAERS Safety Report 10411371 (Version 1)
Quarter: 2014Q3

REPORT INFORMATION
  Report Type: Spontaneous
  Country: US (occurrence: US)
  Receive Date: 20140827
  Receipt Date: 20140827
  Transmission Date: 20150326
  Serious: No
  Sender: FDA-Public Use
  Company Number: US-B.I. PHARMACEUTICALS,INC./RIDGEFIELD-2014-BI-39001BP

PATIENT
  Age: 69 Year
  Sex: Female
  Weight: 79 kg

DRUGS (1)
  1. SPIRIVA [Suspect]
     Active Substance: TIOTROPIUM BROMIDE MONOHYDRATE
     Indication: CHRONIC OBSTRUCTIVE PULMONARY DISEASE
     Dosage: 18 MCG
     Route: 055
     Dates: start: 2011

REACTIONS (6)
  - Headache [Not Recovered/Not Resolved]
  - Amnesia [Not Recovered/Not Resolved]
  - Rotator cuff syndrome [Recovered/Resolved]
  - Concussion [Not Recovered/Not Resolved]
  - Fall [Recovered/Resolved]
  - Post-traumatic neck syndrome [Not Recovered/Not Resolved]

NARRATIVE: CASE EVENT DATE: 20140622
